FAERS Safety Report 7375744-2 (Version None)
Quarter: 2011Q1

REPORT INFORMATION
  Report Type: 
  Country: None (occurrence: None)
  Receive Date: 20110325
  Receipt Date: 20110321
  Transmission Date: 20110831
  Serious: Yes (Death, Hospitalization)
  Sender: FDA-Public Use
  Company Number: US-JNJFOC-20110309417

PATIENT
  Sex: Female

DRUGS (1)
  1. STELARA [Suspect]
     Indication: PSORIASIS
     Route: 058

REACTIONS (1)
  - GASTROINTESTINAL HAEMORRHAGE [None]
